FAERS Safety Report 9116109 (Version 4)
Quarter: 2013Q3

REPORT INFORMATION
  Report Type: Report from Study
  Country: US (occurrence: US)
  Receive Date: 20130225
  Receipt Date: 20130708
  Transmission Date: 20140515
  Serious: Yes (Hospitalization)
  Sender: FDA-Public Use
  Company Number: US-ACTELION-A-US2012-69390

PATIENT
  Age: 76 Year
  Sex: Female

DRUGS (15)
  1. TRACLEER [Suspect]
     Indication: PULMONARY ARTERIAL HYPERTENSION
     Dosage: 125 MG, BID
     Route: 048
  2. REMODULIN [Concomitant]
  3. COUMADIN [Concomitant]
  4. ADCIRCA [Concomitant]
  5. LASIX [Concomitant]
  6. LISINOPRIL [Concomitant]
  7. ATARAX [Concomitant]
  8. SYNTHROID [Concomitant]
  9. LORAZEPAM [Concomitant]
  10. ALDACTONE [Concomitant]
  11. BENICAR [Concomitant]
  12. POTASSIUM [Concomitant]
  13. PRILOSEC [Concomitant]
  14. TRAMADOL [Concomitant]
  15. OXYGEN [Concomitant]

REACTIONS (16)
  - Splenic rupture [Recovered/Resolved]
  - Splenectomy [Unknown]
  - Spinal cord disorder [Not Recovered/Not Resolved]
  - Hip fracture [Unknown]
  - Surgery [Unknown]
  - Fall [Recovered/Resolved]
  - Pain [Unknown]
  - Loss of consciousness [Recovered/Resolved]
  - Postoperative thrombosis [Unknown]
  - Dizziness postural [Unknown]
  - Asthenia [Recovered/Resolved]
  - Gait disturbance [Recovered/Resolved]
  - Headache [Unknown]
  - Malaise [Not Recovered/Not Resolved]
  - Pain in extremity [Unknown]
  - Back pain [Unknown]
